FAERS Safety Report 5224080-9 (Version None)
Quarter: 2007Q1

REPORT INFORMATION
  Report Type: 
  Country: None (occurrence: None)
  Receive Date: 20070130
  Receipt Date: 20070123
  Transmission Date: 20070707
  Serious: Yes (Death)
  Sender: FDA-Public Use
  Company Number: US-BRACCO-BDI-008969

PATIENT
  Age: 77 Year
  Sex: Female

DRUGS (5)
  1. ISOVUE-128 [Suspect]
     Indication: COMPUTERISED TOMOGRAM
     Route: 042
     Dates: start: 20061218, end: 20061218
  2. ASPIRIN [Concomitant]
     Route: 050
  3. ZOSYN [Concomitant]
     Route: 050
  4. VANCOMYCIN [Concomitant]
     Route: 050
  5. HYDROCORTISONE [Concomitant]
     Route: 050

REACTIONS (6)
  - BLOOD PRESSURE DECREASED [None]
  - CARDIAC ARREST [None]
  - CARDIO-RESPIRATORY ARREST [None]
  - CONFUSIONAL STATE [None]
  - HEART RATE DECREASED [None]
  - LOSS OF CONSCIOUSNESS [None]
